FAERS Safety Report 8239121-4 (Version None)
Quarter: 2012Q1

REPORT INFORMATION
  Report Type: 
  Country: None (occurrence: None)
  Receive Date: 20120328
  Receipt Date: 20120321
  Transmission Date: 20120608
  Serious: Yes (Hospitalization)
  Sender: FDA-Public Use
  Company Number: US-AMGEN-USASP2012007920

PATIENT
  Age: 84 Year
  Sex: Female

DRUGS (1)
  1. ENBREL [Suspect]
     Indication: RHEUMATOID ARTHRITIS
     Dosage: 50 MG, QWK
     Dates: start: 20100121

REACTIONS (6)
  - BACK PAIN [None]
  - FALL [None]
  - INJECTION SITE PAIN [None]
  - PAIN [None]
  - INJECTION SITE PRURITUS [None]
  - CONTUSION [None]
